FAERS Safety Report 4555291-3 (Version None)
Quarter: 2005Q1

REPORT INFORMATION
  Report Type: 
  Country: None (occurrence: None)
  Receive Date: 20041227
  Receipt Date: 20040720
  Transmission Date: 20050727
  Serious: No
  Sender: FDA-Public Use
  Company Number: US084361

PATIENT
  Age: 75 Year
  Sex: Female
  Weight: 64.9 kg

DRUGS (1)
  1. ARANESP [Suspect]
     Indication: RENAL FAILURE CHRONIC
     Dosage: 60 MCG, 1 IN 2 WEEKS, SC
     Route: 058
     Dates: start: 20040623, end: 20040707

REACTIONS (2)
  - PARAESTHESIA [None]
  - RASH [None]
